FAERS Safety Report 4726492-6 (Version None)
Quarter: 2005Q3

REPORT INFORMATION
  Report Type: 
  Country: None (occurrence: None)
  Receive Date: 20050725
  Receipt Date: 20050505
  Transmission Date: 20060218
  Serious: No
  Sender: FDA-Public Use
  Company Number: USA050597460

PATIENT
  Age: 10 Year
  Sex: Male
  Weight: 37 kg

DRUGS (2)
  1. STRATTERA [Suspect]
     Indication: ATTENTION DEFICIT/HYPERACTIVITY DISORDER
     Dosage: 18 MG DAY
     Dates: start: 20050505
  2. SINGULAIR(MONTELUKAST) [Concomitant]

REACTIONS (2)
  - ODYNOPHAGIA [None]
  - THROAT IRRITATION [None]
